FAERS Safety Report 22944183 (Version 3)
Quarter: 2023Q4

REPORT INFORMATION
  Report Type: Spontaneous
  Country: DE (occurrence: DE)
  Receive Date: 20230914
  Receipt Date: 20231104
  Transmission Date: 20240109
  Serious: Yes (Other)
  Sender: FDA-Public Use
  Company Number: DE-BAXTER-2023BAX029781

PATIENT

DRUGS (32)
  1. BORTEZOMIB [Suspect]
     Active Substance: BORTEZOMIB
     Indication: Plasma cell myeloma
     Dosage: 1.3 MG/M2, D1, BRIDGING THERAPY
     Route: 065
     Dates: start: 20230517
  2. BORTEZOMIB [Suspect]
     Active Substance: BORTEZOMIB
     Dosage: 1.3 MG/M2, D4, BRIDGING THERAPY
     Route: 065
     Dates: start: 20230520
  3. BORTEZOMIB [Suspect]
     Active Substance: BORTEZOMIB
     Dosage: 1.3 MG/M2, D1, BRIDGING THERAPY, SECOND CYCLE, AS A PART OF SHORTENED PROTOCOL POM-PAD-DARA
     Route: 065
     Dates: start: 20230612
  4. BORTEZOMIB [Suspect]
     Active Substance: BORTEZOMIB
     Dosage: 1.3 MG/M2, D1, BRIDGING THERAPY, THIRD CYCLE, AS A PART OF SHORTENED PROTOCOL POM-PAD-DARA
     Route: 065
     Dates: start: 20230704
  5. DOXORUBICIN [Suspect]
     Active Substance: DOXORUBICIN
     Indication: Plasma cell myeloma
     Dosage: 9 MG/M2, D1-4, BRIDGING THERAPY
     Route: 065
     Dates: start: 20230517, end: 20230520
  6. DOXORUBICIN [Suspect]
     Active Substance: DOXORUBICIN
     Dosage: 9 MG/M2, D1, BRIDGING THERAPY, SECOND CYCLE, AS A PART OF SHORTENED PROTOCOL POM-PAD-DARA
     Route: 065
     Dates: start: 20230613
  7. DOXORUBICIN [Suspect]
     Active Substance: DOXORUBICIN
     Dosage: 9 MG/M2, D2, BRIDGING THERAPY, SECOND CYCLE, AS A PART OF SHORTENED PROTOCOL POM-PAD-DARA
     Route: 065
     Dates: start: 20230614
  8. DOXORUBICIN [Suspect]
     Active Substance: DOXORUBICIN
     Dosage: 9 MG/M2, D3, BRIDGING THERAPY, SECOND CYCLE, AS A PART OF SHORTENED PROTOCOL POM-PAD-DARA
     Route: 065
     Dates: start: 20230615
  9. DOXORUBICIN [Suspect]
     Active Substance: DOXORUBICIN
     Dosage: 9 MG/M2, D1, BRIDGING THERAPY, THIRD CYCLE, AS A PART OF SHORTENED PROTOCOL POM-PAD-DARA
     Route: 065
     Dates: start: 20230705
  10. DOXORUBICIN [Suspect]
     Active Substance: DOXORUBICIN
     Dosage: 9 MG/M2, D2, BRIDGING THERAPY, THIRD CYCLE, AS A PART OF SHORTENED PROTOCOL POM-PAD-DARA
     Route: 065
     Dates: start: 20230706
  11. DOXORUBICIN [Suspect]
     Active Substance: DOXORUBICIN
     Dosage: 9 MG/M2, D3, BRIDGING THERAPY, THIRD CYCLE, AS A PART OF SHORTENED PROTOCOL POM-PAD-DARA
     Route: 065
     Dates: start: 20230707
  12. DOXORUBICIN [Suspect]
     Active Substance: DOXORUBICIN
     Dosage: 6 MG/M2, D1-4, BRIDGING THERAPY, FOURTH CYCLE, AS A PART OF SHORTENED PROTOCOL POM-PAD-DARA
     Route: 065
     Dates: start: 20230805
  13. DARATUMUMAB [Suspect]
     Active Substance: DARATUMUMAB
     Indication: Plasma cell myeloma
     Dosage: 16 MG/M2, D0, BRIDGING THERAPY
     Route: 065
     Dates: start: 20230516
  14. DARATUMUMAB [Suspect]
     Active Substance: DARATUMUMAB
     Dosage: 16 MG/M2, D5, BRIDGING THERAPY
     Route: 065
     Dates: start: 20230521
  15. DARATUMUMAB [Suspect]
     Active Substance: DARATUMUMAB
     Dosage: 16 MG/M2, D0, BRIDGING THERAPY, SECOND CYCLE, AS A PART OF SHORTENED PROTOCOL POM-PAD-DARA
     Route: 065
     Dates: start: 20230612
  16. DARATUMUMAB [Suspect]
     Active Substance: DARATUMUMAB
     Dosage: 16 MG/M2, D3, BRIDGING THERAPY, SECOND CYCLE, AS A PART OF SHORTENED PROTOCOL POM-PAD-DARA
     Route: 065
     Dates: start: 20230615
  17. DARATUMUMAB [Suspect]
     Active Substance: DARATUMUMAB
     Dosage: 16 MG/M2, D0, BRIDGING THERAPY, THIRD CYCLE, AS A PART OF SHORTENED PROTOCOL POM-PAD-DARA
     Route: 065
     Dates: start: 20230704
  18. DARATUMUMAB [Suspect]
     Active Substance: DARATUMUMAB
     Dosage: 16 MG/M2, D3, BRIDGING THERAPY, THIRD CYCLE, AS A PART OF SHORTENED PROTOCOL POM-PAD-DARA
     Route: 065
     Dates: start: 20230707
  19. DEXAMETHASONE [Suspect]
     Active Substance: DEXAMETHASONE
     Indication: Plasma cell myeloma
     Dosage: 20 MG, D0, BRIDGING THERAPY
     Route: 065
     Dates: start: 20230516
  20. DEXAMETHASONE [Suspect]
     Active Substance: DEXAMETHASONE
     Dosage: 20 MG, D1, BRIDGING THERAPY
     Route: 065
     Dates: start: 20230517
  21. DEXAMETHASONE [Suspect]
     Active Substance: DEXAMETHASONE
     Dosage: 20 MG, D2, BRIDGING THERAPY
     Route: 065
     Dates: start: 20230518
  22. DEXAMETHASONE [Suspect]
     Active Substance: DEXAMETHASONE
     Dosage: 20 MG, D4, BRIDGING THERAPY
     Route: 065
     Dates: start: 20230520
  23. DEXAMETHASONE [Suspect]
     Active Substance: DEXAMETHASONE
     Dosage: 20 MG, D5, BRIDGING THERAPY
     Route: 065
     Dates: start: 20230521
  24. DEXAMETHASONE [Suspect]
     Active Substance: DEXAMETHASONE
     Dosage: 20 MG, D0, BRIDGING THERAPY, SECOND CYCLE, AS A PART OF SHORTENED PROTOCOL POM-PAD-DARA
     Route: 065
     Dates: start: 20230612
  25. DEXAMETHASONE [Suspect]
     Active Substance: DEXAMETHASONE
     Dosage: 20 MG, D1, BRIDGING THERAPY, SECOND CYCLE, AS A PART OF SHORTENED PROTOCOL POM-PAD-DARA
     Route: 065
     Dates: start: 20230613
  26. DEXAMETHASONE [Suspect]
     Active Substance: DEXAMETHASONE
     Dosage: 20 MG, D2, BRIDGING THERAPY, SECOND CYCLE, AS A PART OF SHORTENED PROTOCOL POM-PAD-DARA
     Route: 065
     Dates: start: 20230614
  27. DEXAMETHASONE [Suspect]
     Active Substance: DEXAMETHASONE
     Dosage: 20 MG, D0, BRIDGING THERAPY, THIRD CYCLE, AS A PART OF SHORTENED PROTOCOL POM-PAD-DARA
     Route: 065
     Dates: start: 20230704
  28. DEXAMETHASONE [Suspect]
     Active Substance: DEXAMETHASONE
     Dosage: 20 MG, D1, BRIDGING THERAPY, THIRD CYCLE, AS A PART OF SHORTENED PROTOCOL POM-PAD-DARA
     Route: 065
     Dates: start: 20230705
  29. DEXAMETHASONE [Suspect]
     Active Substance: DEXAMETHASONE
     Dosage: 20 MG, D2, BRIDGING THERAPY, THIRD CYCLE, AS A PART OF SHORTENED PROTOCOL POM-PAD-DARA
     Route: 065
     Dates: start: 20230706
  30. POMALIDOMIDE [Suspect]
     Active Substance: POMALIDOMIDE
     Indication: Plasma cell myeloma
     Dosage: 4 MG, D1-14, BRIDGING THERAPY
     Route: 065
     Dates: start: 20230516, end: 20230530
  31. POMALIDOMIDE [Suspect]
     Active Substance: POMALIDOMIDE
     Dosage: 4 MG, D1-3, BRIDGING THERAPY, SECOND CYCLE, AS A PART OF SHORTENED PROTOCOL POM-PAD-DARA
     Route: 065
     Dates: start: 20230612, end: 20230615
  32. POMALIDOMIDE [Suspect]
     Active Substance: POMALIDOMIDE
     Dosage: 2 MG, D1-3, BRIDGING THERAPY, THIRD CYCLE, AS A PART OF SHORTENED PROTOCOL POM-PAD-DARA
     Route: 065
     Dates: start: 20230704, end: 20230707

REACTIONS (1)
  - Plasma cell myeloma [Unknown]

NARRATIVE: CASE EVENT DATE: 20230101
